FAERS Safety Report 5615888-6 (Version None)
Quarter: 2008Q1

REPORT INFORMATION
  Report Type: 
  Country: None (occurrence: None)
  Receive Date: 20080206
  Receipt Date: 20080124
  Transmission Date: 20080703
  Serious: Yes (Death)
  Sender: FDA-Public Use
  Company Number: GB-RANBAXY-2008RR-12420

PATIENT

DRUGS (4)
  1. CETIRIZINE RPG 10MG COMPRIME PELLICULE SECABLE [Suspect]
     Route: 065
  2. CO-CODAMOL [Suspect]
     Route: 065
  3. NEFOPAM [Suspect]
     Route: 065
  4. EFFEXOR [Suspect]
     Route: 065

REACTIONS (3)
  - CONVULSION [None]
  - FALL [None]
  - OVERDOSE [None]
